FAERS Safety Report 23973787 (Version 2)
Quarter: 2024Q2

REPORT INFORMATION
  Report Type: Spontaneous
  Country: FR (occurrence: FR)
  Receive Date: 20240613
  Receipt Date: 20240628
  Transmission Date: 20240716
  Serious: Yes (Hospitalization, Other)
  Sender: FDA-Public Use
  Company Number: FR-TEVA-VS-3207673

PATIENT
  Age: 25 Year
  Sex: Male

DRUGS (7)
  1. RISPERIDONE [Suspect]
     Active Substance: RISPERIDONE
     Indication: Schizophrenia
     Dosage: RECEIVED FOR 4WEEKS
     Route: 065
  2. OLANZAPINE [Suspect]
     Active Substance: OLANZAPINE
     Indication: Schizophrenia
     Dosage: RECEIVED FOR 2WEEKS
     Route: 065
  3. OLANZAPINE [Suspect]
     Active Substance: OLANZAPINE
     Indication: Schizophrenia
     Route: 065
  4. OLANZAPINE [Suspect]
     Active Substance: OLANZAPINE
     Indication: Schizophrenia
     Dosage: RESTARTED
     Route: 065
  5. HALOPERIDOL [Suspect]
     Active Substance: HALOPERIDOL
     Indication: Schizophrenia
     Route: 065
  6. CETIRIZINE [Suspect]
     Active Substance: CETIRIZINE HYDROCHLORIDE
     Indication: Urticaria cholinergic
     Route: 065
  7. CLOZAPINE [Suspect]
     Active Substance: CLOZAPINE
     Indication: Schizophrenia
     Route: 065

REACTIONS (5)
  - Drug ineffective [Unknown]
  - Urticaria cholinergic [Recovering/Resolving]
  - Treatment noncompliance [Unknown]
  - Nervous system disorder [Unknown]
  - Intentional product misuse [Unknown]
